FAERS Safety Report 5257423-0 (Version None)
Quarter: 2007Q1

REPORT INFORMATION
  Report Type: 
  Country: None (occurrence: None)
  Receive Date: 20070307
  Receipt Date: 20060804
  Transmission Date: 20070707
  Serious: No
  Sender: FDA-Public Use
  Company Number: US-GLAXOSMITHKLINE-A0613799A

PATIENT
  Age: 89 Year
  Sex: Female
  Weight: 60 kg

DRUGS (5)
  1. REQUIP [Suspect]
     Indication: RESTLESS LEGS SYNDROME
     Dosage: 1MG PER DAY
     Route: 048
     Dates: start: 20060617
  2. BLOOD PRESSURE MEDICATION [Concomitant]
  3. FOSAMAX [Concomitant]
  4. FACID [Concomitant]
  5. CALTRATE [Concomitant]

REACTIONS (2)
  - CONTUSION [None]
  - FALL [None]
